FAERS Safety Report 17585022 (Version 1)
Quarter: 2020Q1

REPORT INFORMATION
  Report Type: Spontaneous
  Country: US (occurrence: US)
  Receive Date: 20200326
  Receipt Date: 20200326
  Transmission Date: 20200409
  Serious: Yes (Other)
  Sender: FDA-Public Use
  Company Number: US-PFIZER INC-2020125232

PATIENT
  Age: 60 Year
  Sex: Male

DRUGS (2)
  1. GENOTROPIN [Suspect]
     Active Substance: SOMATROPIN
     Dosage: 0.4 MG, UNK (ALTERNATE 0.2MG AND 0.4MG DAILY)
  2. GENOTROPIN [Suspect]
     Active Substance: SOMATROPIN
     Dosage: 0.2 MG, ALTERNATE DAY (ALTERNATE 0.2MG AND 0.4MG DAILY)

REACTIONS (3)
  - Chronic kidney disease [Unknown]
  - Glucose tolerance impaired [Unknown]
  - Hyperlipidaemia [Unknown]
